FAERS Safety Report 6964976-0 (Version None)
Quarter: 2010Q3

REPORT INFORMATION
  Report Type: 
  Country: None (occurrence: None)
  Receive Date: 20100903
  Receipt Date: 20100830
  Transmission Date: 20110219
  Serious: Yes (Life-Threatening)
  Sender: FDA-Public Use
  Company Number: FR-ASTRAZENECA-2010SE40821

PATIENT
  Age: 20354 Day
  Sex: Female

DRUGS (10)
  1. DIPRIVAN [Suspect]
     Dosage: ONE SINGLE DOSE
     Route: 042
     Dates: start: 20090318
  2. SUCCINYLCHOLINE CHLORIDE [Suspect]
     Dosage: ONE SINGLE DOSE
     Route: 042
     Dates: start: 20090318
  3. ATENOLOL [Concomitant]
     Route: 048
  4. ATACAND [Concomitant]
     Route: 048
  5. NIMBEX [Concomitant]
     Route: 042
  6. ULTIVA [Concomitant]
     Route: 042
  7. SIMVASTATIN [Concomitant]
     Route: 048
  8. XANAX [Concomitant]
     Route: 048
  9. EUPANTOL [Concomitant]
     Route: 048
  10. IMOVANE [Concomitant]

REACTIONS (2)
  - ANAPHYLACTIC SHOCK [None]
  - SKIN TEST NEGATIVE [None]
